FAERS Safety Report 9456019 (Version 1)
Quarter: 2013Q3

REPORT INFORMATION
  Report Type: Spontaneous
  Country: GB (occurrence: GB)
  Receive Date: 20130813
  Receipt Date: 20130813
  Transmission Date: 20140515
  Serious: Yes (Other)
  Sender: FDA-Public Use
  Company Number: GB-VERTEX PHARMACEUTICALS INC-2013-008724

PATIENT
  Sex: 0

DRUGS (3)
  1. INCIVO [Suspect]
     Indication: HEPATITIS C
     Dosage: TABLET
     Route: 048
  2. RIBAVIRIN [Suspect]
     Indication: HEPATITIS C
     Dosage: UNK
     Route: 065
  3. PEGINTERFERON ALFA [Suspect]
     Indication: HEPATITIS C
     Dosage: UNK
     Route: 065

REACTIONS (10)
  - Depression [Unknown]
  - Anaemia [Unknown]
  - Blood bilirubin increased [Unknown]
  - Gastrointestinal disorder [Unknown]
  - Fatigue [Unknown]
  - Pruritus [Unknown]
  - Rash [Unknown]
  - Proctalgia [Unknown]
  - Nausea [Unknown]
  - Oral candidiasis [Unknown]
